FAERS Safety Report 6140599-0 (Version None)
Quarter: 2009Q2

REPORT INFORMATION
  Report Type: 
  Country: None (occurrence: None)
  Receive Date: 20090402
  Receipt Date: 20090326
  Transmission Date: 20091009
  Serious: Yes (Other)
  Sender: FDA-Public Use
  Company Number: US-SP-2009-01132

PATIENT
  Age: 37 Year
  Sex: Female

DRUGS (4)
  1. BOTULISM AB [Suspect]
     Indication: BOTULISM
     Route: 042
     Dates: start: 20090122
  2. CITALOPRAM [Concomitant]
     Dosage: QD
     Route: 048
  3. LEVOTHYROXINE SODIUM [Concomitant]
     Dosage: QD
     Route: 048
  4. ZYRTEC [Concomitant]
     Dosage: PRN
     Route: 048

REACTIONS (2)
  - SWELLING FACE [None]
  - SWOLLEN TONGUE [None]
